FAERS Safety Report 13790035 (Version 1)
Quarter: 2017Q3

REPORT INFORMATION
  Report Type: Spontaneous
  Country: BR (occurrence: BR)
  Receive Date: 20170725
  Receipt Date: 20170725
  Transmission Date: 20171127
  Serious: Yes (Other)
  Sender: FDA-Public Use
  Company Number: PHHY2017BR106687

PATIENT
  Sex: Male
  Weight: 88 kg

DRUGS (1)
  1. FORASEQ [Suspect]
     Active Substance: BUDESONIDE\FORMOTEROL FUMARATE
     Indication: ASTHMATIC CRISIS
     Dosage: UNK UNK, Q12H (60 PLUS 60 CAPSULES)
     Route: 048

REACTIONS (2)
  - Sneezing [Recovering/Resolving]
  - Asthmatic crisis [Recovering/Resolving]
